FAERS Safety Report 25013320 (Version 1)
Quarter: 2025Q1

REPORT INFORMATION
  Report Type: Spontaneous
  Country: US (occurrence: US)
  Receive Date: 20250226
  Receipt Date: 20250226
  Transmission Date: 20250408
  Serious: No
  Sender: MYLAN
  Company Number: US-MYLANLABS-2025M1013703

PATIENT
  Age: 65 Year
  Sex: Male
  Weight: 89.8 kg

DRUGS (16)
  1. SILDENAFIL CITRATE [Suspect]
     Active Substance: SILDENAFIL CITRATE
     Indication: Erectile dysfunction
     Dosage: 50 MILLIGRAM, QD (1/2 TABLET PO DAILY AS NEEDED)
  2. VYNDAMAX [Suspect]
     Active Substance: TAFAMIDIS
     Indication: Cardiac amyloidosis
  3. POTASSIUM CHLORIDE [Suspect]
     Active Substance: POTASSIUM CHLORIDE
     Indication: Hypokalaemia
     Dosage: 10 MILLIEQUIVALENT, QD (ONCE DAILY PRN)
     Dates: start: 202501
  4. ASPIRIN [Concomitant]
     Active Substance: ASPIRIN
     Indication: Prophylaxis
     Dosage: 81 MILLIGRAM, QD (ONCE DAILY)
  5. ATORVASTATIN [Concomitant]
     Active Substance: ATORVASTATIN
     Indication: Hyperlipidaemia
     Dosage: 20 MILLIGRAM, QD (ONCE DAILY)
  6. CYCLOBENZAPRINE [Concomitant]
     Active Substance: CYCLOBENZAPRINE
     Indication: Muscle spasms
     Dosage: 10 MILLIGRAM, TID (THREE TIMES A DAY AS NEEDED)
  7. JARDIANCE [Concomitant]
     Active Substance: EMPAGLIFLOZIN
     Indication: Cardiac failure
     Dosage: 10 MILLIGRAM, QD (ONCE DAILY)
  8. FUROSEMIDE [Concomitant]
     Active Substance: FUROSEMIDE
     Indication: Diuretic therapy
     Dosage: 40 MILLIGRAM, QOD (EVERY OTHER DAY)
  9. HYDROXYUREA [Concomitant]
     Active Substance: HYDROXYUREA
     Indication: Polycythaemia
     Dosage: 1500 MILLIGRAM, QD (3 CAPSULES PO ONCE DAILY)
  10. ENTRESTO [Concomitant]
     Active Substance: SACUBITRIL\VALSARTAN
     Indication: Cardiac failure
     Dosage: 49-51 MILLIGRAM, BID (1 TABLET PO TWICE A DAY)
  11. VITAMIN A [Concomitant]
     Active Substance: VITAMIN A
     Indication: Vitamin supplementation
     Dosage: 3 MILLIGRAM, QD (ONCE DAILY)
  12. AMVUTTRA [Concomitant]
     Active Substance: VUTRISIRAN
     Indication: Amyloidosis
     Dosage: 25 MILLIGRAM, 3XMONTHS (EVERY 3 MONTHS)
  13. VITAMIN D [Concomitant]
     Active Substance: VITAMIN D NOS
     Indication: Vitamin D deficiency
     Dosage: UNK, QD (1 CAPSULE PO ONCE DAILY)
  14. OXYBUTYNIN [Concomitant]
     Active Substance: OXYBUTYNIN
     Indication: Hypertonic bladder
     Dosage: 10 MILLIGRAM, QD (ONCE DAILY)
  15. ACETAMINOPHEN [Concomitant]
     Active Substance: ACETAMINOPHEN
     Indication: Pain
     Dosage: 650 MILLIGRAM, Q8H (EVERY 8 HOURS)
  16. FLUTICASONE [Concomitant]
     Active Substance: FLUTICASONE
     Indication: Obstructive airways disorder
     Dosage: UNK, QD (2 SPRAYS IN EACH NOSTRIL ONCE DAILY)

REACTIONS (3)
  - Muscle spasms [Unknown]
  - Wrong technique in product usage process [Unknown]
  - Off label use [Unknown]
